FAERS Safety Report 8760659 (Version 2)
Quarter: 2012Q4

REPORT INFORMATION
  Report Type: 
  Country: US (occurrence: US)
  Receive Date: 20120830
  Receipt Date: 20121016
  Transmission Date: 20130627
  Serious: Yes (Other)
  Sender: FDA-Public Use
  Company Number: US-TEVA-355680USA

PATIENT
  Sex: Female
  Weight: 74.91 kg

DRUGS (15)
  1. NUVIGIL [Suspect]
     Dosage: QAM
     Route: 048
  2. NUVIGIL [Suspect]
     Dosage: QAM
     Route: 048
  3. VIBRYD [Concomitant]
     Dosage: QAM
     Route: 048
  4. NEXIUM [Concomitant]
     Indication: HIATUS HERNIA
     Dosage: 40 Milligram Daily;
     Route: 048
  5. MELOXICAM [Concomitant]
     Indication: ARTHRITIS
     Route: 048
  6. DIAZEPAM [Concomitant]
     Indication: NERVOUSNESS
     Dosage: 20 Milligram Daily; PRN
     Route: 048
  7. CYMBALTA [Concomitant]
     Indication: DEPRESSION
     Dosage: 120 Millimol Daily;
     Route: 048
  8. HYDROCHLOROTHIAZIDE [Concomitant]
     Indication: HYPERTENSION
     Dosage: 25 Milligram Daily;
     Route: 048
  9. METOPROLOL TARTRATE [Concomitant]
     Indication: HYPERTENSION
     Dosage: 50 Milligram Daily;
     Route: 048
  10. LOVASTATIN [Concomitant]
     Indication: BLOOD CHOLESTEROL INCREASED
     Dosage: 20 Milligram Daily;
     Route: 046
  11. METHYLPHENIDATE [Concomitant]
     Dosage: 20 Milligram Daily;
     Route: 048
  12. ASA [Concomitant]
     Indication: ANTICOAGULANT THERAPY
     Dosage: 81 Milligram Daily;
     Route: 048
  13. CALCIUM [Concomitant]
     Route: 048
  14. MULTIVITAMINS [Concomitant]
     Indication: SUPPLEMENTATION THERAPY
     Route: 046
  15. HYDROCODONE [Concomitant]
     Indication: PAIN
     Dosage: Q 6-8 hrs PRN
     Route: 048

REACTIONS (14)
  - Swollen tongue [Recovered/Resolved]
  - Dyspnoea [Recovered/Resolved]
  - Dysphagia [Recovered/Resolved]
  - Wheezing [Recovered/Resolved]
  - Choking sensation [Recovered/Resolved]
  - Cough [Recovered/Resolved]
  - Nasal discomfort [Recovered/Resolved]
  - Eating disorder [Recovered/Resolved]
  - Weight increased [Recovered/Resolved]
  - Drug effect decreased [Recovered/Resolved]
  - Insomnia [Recovered/Resolved]
  - Stomatitis [Recovered/Resolved]
  - Headache [Recovered/Resolved]
  - Off label use [Unknown]
